FAERS Safety Report 5277569-0 (Version None)
Quarter: 2007Q1

REPORT INFORMATION
  Report Type: 
  Country: None (occurrence: None)
  Receive Date: 20070327
  Receipt Date: 20070312
  Transmission Date: 20070707
  Serious: Yes (Hospitalization, Other)
  Sender: FDA-Public Use
  Company Number: US-SHR-US-2007-004356

PATIENT
  Age: 33 Year
  Sex: Female

DRUGS (10)
  1. BETASERON [Suspect]
     Indication: RELAPSING-REMITTING MULTIPLE SCLEROSIS
     Route: 058
     Dates: start: 20011001, end: 20031101
  2. BETASERON [Suspect]
     Dosage: 8 MIU, EVERY 2D
     Route: 058
     Dates: start: 20050801
  3. BETASERON [Suspect]
     Route: 058
     Dates: start: 20060701, end: 20060801
  4. BETASERON [Suspect]
     Dosage: 8 MIU, EVERY 2D
     Route: 058
     Dates: start: 20061001
  5. COUMADIN [Concomitant]
     Indication: THROMBOSIS
     Dosage: 3 OR 6 MG ALTERNATING, EVERY 2D
     Dates: start: 20011001
  6. CLONAPIN [Concomitant]
     Indication: SLEEP DISORDER
     Dosage: .25 MG, BED T.
     Dates: start: 20050101
  7. PROGESTERONE [Concomitant]
     Indication: HORMONE THERAPY
     Dosage: 25 G, BED T.
     Route: 061
     Dates: start: 20060101
  8. TYLENOL [Concomitant]
     Indication: ADVERSE DRUG REACTION
     Dosage: 500MG BEFORE+AS REQ'D AFTER BETA
     Route: 048
     Dates: start: 20060101
  9. LOCOID [Concomitant]
     Dosage: 2-3X/DAY
     Route: 061
     Dates: start: 20070101
  10. CALCIUM [Concomitant]
     Dosage: 2 CAP(S), 1X/DAY
     Route: 048
     Dates: start: 20061201, end: 20070302

REACTIONS (19)
  - ADRENAL DISORDER [None]
  - DEPRESSION [None]
  - DIZZINESS [None]
  - ENDOMETRIAL ABLATION [None]
  - FACTOR V LEIDEN MUTATION [None]
  - GALLBLADDER OPERATION [None]
  - HEPATIC ENZYME INCREASED [None]
  - HEPATIC MASS [None]
  - HYPOTENSION [None]
  - HYSTERECTOMY [None]
  - INJECTION SITE ERYTHEMA [None]
  - LABORATORY TEST ABNORMAL [None]
  - MALIGNANT MELANOMA [None]
  - PALPITATIONS [None]
  - PROTEIN S [None]
  - SYNCOPE [None]
  - TACHYCARDIA [None]
  - THROMBOSIS [None]
  - WHITE BLOOD CELL COUNT INCREASED [None]
